FAERS Safety Report 5731515-1 (Version None)
Quarter: 2008Q2

REPORT INFORMATION
  Report Type: 
  Country: None (occurrence: None)
  Receive Date: 20080508
  Receipt Date: 20080430
  Transmission Date: 20081010
  Serious: Yes (Other)
  Sender: FDA-Public Use
  Company Number: PHEH2008US04197

PATIENT
  Age: 63 Year
  Sex: Female
  Weight: 72.562 kg

DRUGS (11)
  1. TEKTURNA [Suspect]
     Indication: HYPERTENSION
     Dosage: 300 MG, UNK
     Dates: start: 20080229
  2. TEKTURNA [Suspect]
     Dosage: 150 MG, QD
  3. TEKTURNA [Suspect]
     Dosage: 150 MG, QOD
  4. ACCUPRIL [Concomitant]
     Dosage: UNK, UNK
  5. CAPOTEN [Concomitant]
     Dosage: UNK, PRN
  6. DILANTIN [Concomitant]
     Dosage: 400 MG, QD
  7. DEPAKOTE [Concomitant]
     Dosage: 1250 MG, QD
  8. PHENOBARBITAL TAB [Concomitant]
     Dosage: 90 MG, QD
  9. LEVOCARNITINE [Concomitant]
     Dosage: UNK, UNK
  10. EXCEDRIN (MIGRAINE) [Concomitant]
     Dosage: UNK, UNK
  11. VITAMIN B-12 [Concomitant]
     Dosage: UNK, UNK
     Route: 030

REACTIONS (5)
  - ACTIVITIES OF DAILY LIVING IMPAIRED [None]
  - CONFUSIONAL STATE [None]
  - GASTROINTESTINAL DISORDER [None]
  - NERVOUS SYSTEM DISORDER [None]
  - OEDEMA [None]
